FAERS Safety Report 18581870 (Version 1)
Quarter: 2020Q4

REPORT INFORMATION
  Report Type: Other
  Country: FR (occurrence: FR)
  Receive Date: 20201205
  Receipt Date: 20201205
  Transmission Date: 20210114
  Serious: Yes (Hospitalization)
  Sender: FDA-Public Use
  Company Number: FR-CADILA HEALTHCARE LIMITED-FR-ZYDUS-058641

PATIENT

DRUGS (1)
  1. METFORMINE [Suspect]
     Active Substance: METFORMIN HYDROCHLORIDE
     Indication: SUICIDE ATTEMPT
     Dosage: 30 CP DE 1000 MG
     Route: 048
     Dates: start: 20201023, end: 20201023

REACTIONS (3)
  - Acute kidney injury [Recovering/Resolving]
  - Lactic acidosis [Recovered/Resolved]
  - Overdose [Recovering/Resolving]

NARRATIVE: CASE EVENT DATE: 20201023
